FAERS Safety Report 17833560 (Version 1)
Quarter: 2020Q2

REPORT INFORMATION
  Report Type: Spontaneous
  Country: US (occurrence: US)
  Receive Date: 20200528
  Receipt Date: 20200528
  Transmission Date: 20200714
  Serious: Yes (Death, Hospitalization)
  Sender: FDA-Public Use
  Company Number: US-ROCHE-2605919

PATIENT
  Sex: Male

DRUGS (1)
  1. RITUXAN [Suspect]
     Active Substance: RITUXIMAB
     Indication: CHRONIC LYMPHOCYTIC LEUKAEMIA
     Dosage: NO
     Route: 065
     Dates: start: 1997, end: 2009

REACTIONS (6)
  - Multiple organ dysfunction syndrome [Fatal]
  - Acute respiratory distress syndrome [Fatal]
  - Lymphatic disorder [Fatal]
  - Off label use [Unknown]
  - Intentional product misuse [Unknown]
  - Fall [Unknown]

NARRATIVE: CASE EVENT DATE: 1997
